FAERS Safety Report 7440139-X (Version None)
Quarter: 2011Q2

REPORT INFORMATION
  Report Type: 
  Country: None (occurrence: None)
  Receive Date: 20110427
  Receipt Date: 20110418
  Transmission Date: 20111010
  Serious: Yes (Other)
  Sender: FDA-Public Use
  Company Number: JP-ROCHE-771538

PATIENT
  Sex: Male
  Weight: 58 kg

DRUGS (4)
  1. ELPLAT [Suspect]
     Indication: COLON CANCER METASTATIC
     Route: 041
     Dates: start: 20100518, end: 20100601
  2. XELODA [Suspect]
     Indication: COLON CANCER METASTATIC
     Route: 048
     Dates: start: 20100518, end: 20100601
  3. WARFARIN [Suspect]
     Indication: COLON CANCER METASTATIC
     Dosage: DOSAGE IS UNCERTAIN.
     Route: 048
  4. PANALDINE [Suspect]
     Indication: COLON CANCER METASTATIC
     Dosage: DOSAGE IS UNCERTAIN. FORM PERORAL AGENT.
     Route: 048

REACTIONS (5)
  - HICCUPS [None]
  - OBSTRUCTIVE AIRWAYS DISORDER [None]
  - DYSPHONIA [None]
  - DYSPHAGIA [None]
  - PHARYNGEAL HAEMATOMA [None]
